FAERS Safety Report 20847742 (Version 1)
Quarter: 2022Q2

REPORT INFORMATION
  Report Type: Report from Study
  Country: IL (occurrence: IL)
  Receive Date: 20220519
  Receipt Date: 20220519
  Transmission Date: 20220720
  Serious: Yes (Hospitalization)
  Sender: FDA-Public Use
  Company Number: IL-ABBVIE-22K-082-4397716-00

PATIENT
  Age: 18 Year
  Sex: Male

DRUGS (2)
  1. HUMIRA [Suspect]
     Active Substance: ADALIMUMAB
     Indication: Crohn^s disease
     Route: 058
     Dates: start: 20211116, end: 20220412
  2. HUMIRA [Suspect]
     Active Substance: ADALIMUMAB
     Route: 058
     Dates: start: 20220412

REACTIONS (3)
  - Intestinal obstruction [Recovering/Resolving]
  - Faecal calprotectin abnormal [Unknown]
  - Faecal calprotectin decreased [Unknown]

NARRATIVE: CASE EVENT DATE: 20220503
